FAERS Safety Report 17279314 (Version 5)
Quarter: 2021Q2

REPORT INFORMATION
  Report Type: Spontaneous
  Country: US (occurrence: US)
  Receive Date: 20200116
  Receipt Date: 20210513
  Transmission Date: 20210716
  Serious: No
  Sender: FDA-Public Use
  Company Number: US-PFIZER INC-2020020596

PATIENT
  Age: 81 Year
  Sex: Female
  Weight: 72.57 kg

DRUGS (2)
  1. XELJANZ XR [Suspect]
     Active Substance: TOFACITINIB CITRATE
     Indication: RHEUMATOID ARTHRITIS
     Dosage: 11 MG, DAILY
  2. XELJANZ XR [Suspect]
     Active Substance: TOFACITINIB CITRATE
     Dosage: 11 MG, 1X/DAY (ONCE A DAY BY MOUTH)
     Route: 048

REACTIONS (11)
  - Fatigue [Unknown]
  - Back disorder [Unknown]
  - Pain [Unknown]
  - Throat irritation [Unknown]
  - Hair texture abnormal [Not Recovered/Not Resolved]
  - Pain in extremity [Unknown]
  - Alopecia [Not Recovered/Not Resolved]
  - Condition aggravated [Not Recovered/Not Resolved]
  - Impaired driving ability [Not Recovered/Not Resolved]
  - Arthropathy [Unknown]
  - Movement disorder [Unknown]

NARRATIVE: CASE EVENT DATE: 202004
